FAERS Safety Report 8831088 (Version 1)
Quarter: 2012Q4

REPORT INFORMATION
  Report Type: 
  Country: LB (occurrence: LB)
  Receive Date: 20121009
  Receipt Date: 20121009
  Transmission Date: 20130627
  Serious: Yes (Death, Hospitalization)
  Sender: FDA-Public Use
  Company Number: PHHY2012LB073552

PATIENT
  Age: 79 Year
  Sex: Female

DRUGS (3)
  1. GLIVEC [Suspect]
     Indication: CHRONIC MYELOID LEUKAEMIA
     Dosage: 400 mg, daily
     Route: 048
     Dates: start: 20071201
  2. SINEMET [Concomitant]
     Dosage: 2 DF (2 tablets), daily
     Route: 048
     Dates: start: 200802
  3. GINSENG [Concomitant]
     Dosage: 1 DF (1 tablet), daily
     Route: 048
     Dates: start: 200901

REACTIONS (2)
  - Decreased appetite [Fatal]
  - Vomiting [Recovering/Resolving]
